FAERS Safety Report 24921950 (Version 1)
Quarter: 2025Q1

REPORT INFORMATION
  Report Type: Spontaneous
  Country: JP (occurrence: JP)
  Receive Date: 20250204
  Receipt Date: 20250204
  Transmission Date: 20250408
  Serious: Yes (Other)
  Sender: RANBAXY
  Company Number: JP-SUN PHARMACEUTICAL INDUSTRIES LTD-2025RR-492096

PATIENT
  Age: 8 Decade
  Sex: Female

DRUGS (2)
  1. IMATINIB [Suspect]
     Active Substance: IMATINIB
     Indication: Neoplasm malignant
     Route: 065
  2. SUNITINIB [Suspect]
     Active Substance: SUNITINIB
     Indication: Neoplasm malignant
     Route: 065

REACTIONS (3)
  - Oedema [Unknown]
  - Disease progression [Unknown]
  - Rash [Unknown]
